FAERS Safety Report 5446373-2 (Version None)
Quarter: 2007Q3

REPORT INFORMATION
  Report Type: 
  Country: None (occurrence: None)
  Receive Date: 20070907
  Receipt Date: 20070829
  Transmission Date: 20080115
  Serious: Yes (Other)
  Sender: FDA-Public Use
  Company Number: B0485883A

PATIENT
  Age: 62 Year
  Sex: Female

DRUGS (3)
  1. ZYBAN [Suspect]
     Indication: DRUG USE FOR UNKNOWN INDICATION
     Route: 048
  2. ANTIBIOTICS [Concomitant]
  3. DIAZEPAM [Concomitant]

REACTIONS (9)
  - ASTHENIA [None]
  - CONVULSION [None]
  - EXTUBATION [None]
  - FATIGUE [None]
  - INTUBATION [None]
  - METABOLIC ACIDOSIS [None]
  - OVERDOSE [None]
  - PNEUMONIA [None]
  - VOMITING [None]
